APPROVED DRUG PRODUCT: BETAMETHASONE VALERATE
Active Ingredient: BETAMETHASONE VALERATE
Strength: EQ 0.1% BASE
Dosage Form/Route: LOTION;TOPICAL
Application: A070484 | Product #001
Applicant: PHARMAFAIR INC
Approved: May 29, 1987 | RLD: No | RS: No | Type: DISCN